FAERS Safety Report 9403701 (Version 1)
Quarter: 2013Q3

REPORT INFORMATION
  Report Type: Spontaneous
  Country: FR (occurrence: FR)
  Receive Date: 20130717
  Receipt Date: 20130717
  Transmission Date: 20140515
  Serious: Yes (Hospitalization)
  Sender: FDA-Public Use
  Company Number: FR-BRISTOL-MYERS SQUIBB COMPANY-19098698

PATIENT
  Age: 68 Year
  Sex: Male

DRUGS (4)
  1. APROVEL FILM-COATED TABS [Suspect]
     Indication: HYPERTENSION
     Dosage: APROVEL 150MG AND APROVEL 300 MG.
  2. TAHOR [Concomitant]
  3. INEXIUM [Concomitant]
  4. STAGID [Concomitant]

REACTIONS (3)
  - Carotid artery stenosis [Unknown]
  - Cerebrovascular accident [Unknown]
  - Dizziness [Unknown]
